FAERS Safety Report 6575951-2 (Version None)
Quarter: 2010Q1

REPORT INFORMATION
  Report Type: 
  Country: None (occurrence: None)
  Receive Date: 20100209
  Receipt Date: 20100202
  Transmission Date: 20100710
  Serious: Yes (Hospitalization)
  Sender: FDA-Public Use
  Company Number: DE-SANOFI-AVENTIS-200910106DE

PATIENT
  Age: 64 Year
  Sex: Male

DRUGS (6)
  1. INSULIN GLARGINE [Suspect]
     Route: 058
  2. TAMSULOSIN HYDROCHLORIDE [Suspect]
     Route: 048
     Dates: start: 20080101
  3. ACTRAPID HUMAN [Suspect]
     Dosage: DOSE AS USED: 8-6-10-10 IU
     Route: 058
  4. METOPROLOL SUCCINATE [Suspect]
     Route: 048
  5. ASPIRIN [Concomitant]
     Indication: PROPHYLAXIS
     Route: 048
     Dates: start: 20070101
  6. TOREM /GFR/ [Concomitant]
     Indication: OEDEMA
     Route: 048

REACTIONS (2)
  - HYPERHIDROSIS [None]
  - SYNCOPE [None]
